FAERS Safety Report 4653552-0 (Version None)
Quarter: 2005Q2

REPORT INFORMATION
  Report Type: 
  Country: None (occurrence: None)
  Receive Date: 20050504
  Receipt Date: 20050425
  Transmission Date: 20051028
  Serious: Yes (Hospitalization, Disabling)
  Sender: FDA-Public Use
  Company Number: GXKR2005US00953

PATIENT
  Age: 24 Year
  Sex: Male

DRUGS (2)
  1. DIAZEPAM [Suspect]
     Indication: MEDICATION ERROR
  2. METHADONE HCL [Suspect]
     Indication: MEDICATION ERROR

REACTIONS (11)
  - ABNORMAL BEHAVIOUR [None]
  - ACTIVITIES OF DAILY LIVING IMPAIRED [None]
  - BRACHIAL PLEXUS INJURY [None]
  - CARDIOPULMONARY FAILURE [None]
  - COGNITIVE DISORDER [None]
  - COMA [None]
  - HYPOXIC ENCEPHALOPATHY [None]
  - INCONTINENCE [None]
  - LIMB INJURY [None]
  - MEMORY IMPAIRMENT [None]
  - MULTIPLE DRUG OVERDOSE ACCIDENTAL [None]
